FAERS Safety Report 8449401-5 (Version None)
Quarter: 2012Q2

REPORT INFORMATION
  Report Type: 
  Country: None (occurrence: None)
  Receive Date: 20120619
  Receipt Date: 20120614
  Transmission Date: 20120825
  Serious: No
  Sender: FDA-Public Use
  Company Number: US-PFIZER INC-2012144896

PATIENT
  Sex: Female
  Weight: 58.957 kg

DRUGS (4)
  1. HYZAAR [Concomitant]
     Indication: HYPERTENSION
     Dosage: 25/100 MG, DAILY
  2. HYZAAR [Concomitant]
     Indication: DIURETIC THERAPY
  3. LIPITOR [Suspect]
     Indication: BLOOD CHOLESTEROL INCREASED
     Dosage: UNK
  4. XALATAN [Suspect]
     Indication: GLAUCOMA
     Dosage: 1 GTT, DAILY
     Route: 047
     Dates: start: 20060101

REACTIONS (2)
  - HEARING IMPAIRED [None]
  - VISUAL IMPAIRMENT [None]
